FAERS Safety Report 8530401-1 (Version None)
Quarter: 2012Q3

REPORT INFORMATION
  Report Type: 
  Country: None (occurrence: None)
  Receive Date: 20120723
  Receipt Date: 20120718
  Transmission Date: 20120928
  Serious: Yes (Hospitalization)
  Sender: FDA-Public Use
  Company Number: 2012SP002012

PATIENT
  Age: 36 Year
  Sex: Female

DRUGS (14)
  1. LATUDA [Suspect]
     Route: 048
  2. ZOFRAN [Concomitant]
     Indication: NAUSEA
  3. ZOFRAN [Concomitant]
     Indication: VOMITING
  4. NEXIUM /01479303/ [Concomitant]
     Indication: PRODUCT USED FOR UNKNOWN INDICATION
  5. DONNATAL [Concomitant]
     Indication: PRODUCT USED FOR UNKNOWN INDICATION
  6. CLONAZEPAM [Concomitant]
     Indication: PRODUCT USED FOR UNKNOWN INDICATION
  7. LAMICTAL [Concomitant]
     Indication: PRODUCT USED FOR UNKNOWN INDICATION
  8. EFFEXOR [Concomitant]
     Indication: PRODUCT USED FOR UNKNOWN INDICATION
  9. LAXATIVES [Concomitant]
     Indication: PRODUCT USED FOR UNKNOWN INDICATION
  10. LATUDA [Suspect]
     Route: 048
     Dates: start: 20100101
  11. PERCOCET [Concomitant]
     Indication: PRODUCT USED FOR UNKNOWN INDICATION
  12. LITHIUM CARBONATE [Concomitant]
     Indication: SCHIZOPHRENIA
  13. LATUDA [Suspect]
     Indication: SCHIZOPHRENIA
     Route: 048
  14. TRAMADOL HYDROCHLORIDE [Concomitant]
     Indication: PRODUCT USED FOR UNKNOWN INDICATION

REACTIONS (3)
  - GASTROINTESTINAL DISORDER [None]
  - GALLBLADDER DISORDER [None]
  - GASTRIC MUCOSAL LESION [None]
